FAERS Safety Report 10064445 (Version 2)
Quarter: 2014Q2

REPORT INFORMATION
  Report Type: Spontaneous
  Country: US (occurrence: US)
  Receive Date: 20140408
  Receipt Date: 20140513
  Transmission Date: 20141212
  Serious: Yes (Hospitalization)
  Sender: FDA-Public Use
  Company Number: US-BAYER-2014-050690

PATIENT
  Age: 27 Year
  Sex: Female

DRUGS (5)
  1. MIRENA [Suspect]
     Indication: CONTRACEPTION
     Dosage: 20 MCG/24HR, CONT
     Route: 015
     Dates: start: 20091214, end: 20130429
  2. MIRENA [Suspect]
     Indication: MENORRHAGIA
     Dosage: 20 MCG/24HR, CONT
     Route: 015
     Dates: start: 200912, end: 20130429
  3. TOPIRAMATE [Concomitant]
     Dosage: UNK
     Dates: start: 201002
  4. VALIUM [Concomitant]
     Dosage: UNK
     Dates: start: 201002
  5. PROPRANOLOL [Concomitant]
     Dosage: UNK
     Dates: start: 201002

REACTIONS (12)
  - Injury [None]
  - Emotional distress [None]
  - Infertility female [None]
  - Post-traumatic pain [None]
  - Vomiting [None]
  - Abdominal pain upper [None]
  - Nausea [None]
  - Diarrhoea [None]
  - Cold sweat [None]
  - Device issue [None]
  - Uterine perforation [None]
  - Device dislocation [None]
